FAERS Safety Report 22299791 (Version 1)
Quarter: 2023Q2

REPORT INFORMATION
  Report Type: Spontaneous
  Country: US (occurrence: None)
  Receive Date: 20230508
  Receipt Date: 20230508
  Transmission Date: 20230722
  Serious: No
  Sender: FDA-Public Use
  Company Number: None

PATIENT

DRUGS (3)
  1. PHYTONADIONE [Suspect]
     Active Substance: PHYTONADIONE
     Route: 048
  2. PHYTONADIONE [Suspect]
     Active Substance: PHYTONADIONE
     Route: 048
  3. APIXABAN [Suspect]
     Active Substance: APIXABAN

REACTIONS (2)
  - Product prescribing error [None]
  - Intercepted product prescribing error [None]
